FAERS Safety Report 20092369 (Version 1)
Quarter: 2021Q4

REPORT INFORMATION
  Report Type: Spontaneous
  Country: US (occurrence: US)
  Receive Date: 20211119
  Receipt Date: 20211119
  Transmission Date: 20220303
  Serious: Yes (Other)
  Sender: FDA-Public Use
  Company Number: US-BAUSCH-BL-2021-037061

PATIENT
  Age: 8 Year
  Sex: Male

DRUGS (1)
  1. POLYMYXIN B SULFATE AND TRIMETHOPRIM [Suspect]
     Active Substance: POLYMYXIN B SULFATE\TRIMETHOPRIM SULFATE
     Indication: Product used for unknown indication
     Route: 065

REACTIONS (3)
  - Heart rate increased [Unknown]
  - Insomnia [Unknown]
  - Agitation [Unknown]
